FAERS Safety Report 6526037-4 (Version None)
Quarter: 2010Q1

REPORT INFORMATION
  Report Type: 
  Country: None (occurrence: None)
  Receive Date: 20100104
  Receipt Date: 20091223
  Transmission Date: 20100710
  Serious: Yes (Other)
  Sender: FDA-Public Use
  Company Number: FR-PFIZER INC-2009313611

PATIENT
  Age: 63 Year
  Sex: Male

DRUGS (8)
  1. XANAX [Suspect]
     Indication: DEPRESSION
     Dosage: UNK
     Route: 048
     Dates: start: 19960101, end: 20090101
  2. XANAX [Suspect]
     Dosage: UNK
     Route: 048
     Dates: start: 20090101
  3. EFFEXOR [Suspect]
     Indication: DEPRESSION
     Dosage: 37.5 MG, 1X/DAY
     Route: 048
     Dates: start: 19960101, end: 20091207
  4. EFFEXOR [Suspect]
     Dosage: 75 MG, 1X/DAY
     Dates: start: 20091208
  5. HAVLANE [Suspect]
     Indication: INSOMNIA
     Dosage: UNK
     Route: 048
     Dates: start: 20090101
  6. HAVLANE [Suspect]
     Dosage: 1 MG, 1X/DAY
     Dates: start: 20090101
  7. TEMGESIC ^ESSEX PHARMA^ [Suspect]
     Dosage: UNK DF, UNK
     Route: 042
  8. SPASFON [Concomitant]
     Indication: DYSURIA
     Dosage: UNK
     Dates: start: 19960101

REACTIONS (10)
  - ANURIA [None]
  - CONDITION AGGRAVATED [None]
  - DEPRESSION [None]
  - DYSURIA [None]
  - FAECALOMA [None]
  - INSOMNIA [None]
  - OPEN ANGLE GLAUCOMA [None]
  - POLLAKIURIA [None]
  - RENAL FAILURE [None]
  - SUBILEUS [None]
